FAERS Safety Report 9331735 (Version 1)
Quarter: 2013Q2

REPORT INFORMATION
  Report Type: Spontaneous
  Country: US (occurrence: None)
  Receive Date: 20130603
  Receipt Date: 20130603
  Transmission Date: 20140414
  Serious: No
  Sender: FDA-Public Use
  Company Number: 2013-00099

PATIENT
  Age: 74 Year
  Sex: Female
  Weight: 77.11 kg

DRUGS (1)
  1. ZICAM ULTRA COLD REMEDY LOZENGES [Suspect]
     Indication: NASOPHARYNGITIS
     Route: 048
     Dates: start: 20130517, end: 20130519

REACTIONS (2)
  - Ageusia [None]
  - Ill-defined disorder [None]
